FAERS Safety Report 5701284-X (Version None)
Quarter: 2008Q2

REPORT INFORMATION
  Report Type: 
  Country: None (occurrence: None)
  Receive Date: 20080407
  Receipt Date: 20080328
  Transmission Date: 20081010
  Serious: Yes (Congenital Anomaly)
  Sender: FDA-Public Use
  Company Number: GXKR2008GB03032

PATIENT

DRUGS (6)
  1. ONDANSETRON [Suspect]
     Dosage: TRANSPLACENTAL
     Route: 064
  2. FERROUS SULPHATE (FERROUS SULFATE) [Concomitant]
  3. FOLIC ACID [Concomitant]
  4. GAVISCON [Concomitant]
  5. OMEPRAZOLE [Concomitant]
  6. PROMETHAZINE [Concomitant]

REACTIONS (2)
  - DRUG EXPOSURE DURING PREGNANCY [None]
  - TALIPES [None]
